FAERS Safety Report 14274286 (Version 4)
Quarter: 2018Q4

REPORT INFORMATION
  Report Type: Spontaneous
  Country: DE (occurrence: DE)
  Receive Date: 20171212
  Receipt Date: 20181006
  Transmission Date: 20190204
  Serious: Yes (Other)
  Sender: FDA-Public Use
  Company Number: DE-AUROBINDO-AUR-APL-2017-44619

PATIENT
  Age: 39 Year
  Sex: Female

DRUGS (2)
  1. IBUPROFEN 400 MG FILM-COATED TABLET [Suspect]
     Active Substance: IBUPROFEN
     Indication: PRODUCT USED FOR UNKNOWN INDICATION
     Dosage: 400 MG, UNK (1 DF)
     Route: 048
  2. IBUPROFEN 400 MG FILM-COATED TABLET [Suspect]
     Active Substance: IBUPROFEN
     Dosage: 1 TAB, UNK
     Route: 048

REACTIONS (4)
  - Caesarean section [Recovered/Resolved]
  - Accidental exposure to product [Recovered/Resolved]
  - Live birth [Unknown]
  - Maternal exposure during pregnancy [Recovered/Resolved]
